FAERS Safety Report 24578553 (Version 1)
Quarter: 2024Q4

REPORT INFORMATION
  Report Type: Spontaneous
  Country: US (occurrence: US)
  Receive Date: 20241105
  Receipt Date: 20241105
  Transmission Date: 20250115
  Serious: Yes (Other)
  Sender: SPECGX
  Company Number: US-SPECGX-T202402127

PATIENT
  Age: 50 Year
  Sex: Male

DRUGS (1)
  1. MORPHINE [Suspect]
     Active Substance: MORPHINE
     Indication: Product used for unknown indication
     Dosage: UNK
     Route: 065

REACTIONS (15)
  - Abscess [Unknown]
  - Pneumonia aspiration [Unknown]
  - Incisional drainage [Unknown]
  - Coma scale abnormal [Unknown]
  - Overdose [Unknown]
  - Substance abuse [Unknown]
  - Unresponsive to stimuli [Unknown]
  - Malnutrition [Unknown]
  - Hypotonia [Unknown]
  - Pupillary reflex impaired [Unknown]
  - Dehydration [Unknown]
  - Cyanosis [Unknown]
  - Cardiac murmur [Unknown]
  - Injection site abscess [Unknown]
  - Miosis [Unknown]
